FAERS Safety Report 8945310 (Version 1)
Quarter: 2012Q4

REPORT INFORMATION
  Report Type: 
  Country: US (occurrence: US)
  Receive Date: 20121205
  Receipt Date: 20121205
  Transmission Date: 20130627
  Serious: No
  Sender: FDA-Public Use
  Company Number: US-009507513-1212USA000849

PATIENT

DRUGS (1)
  1. SAPHRIS [Suspect]
     Dosage: Rapid dissolve

REACTIONS (1)
  - Oral mucosal blistering [Unknown]
